FAERS Safety Report 16508712 (Version 1)
Quarter: 2019Q2

REPORT INFORMATION
  Report Type: Spontaneous
  Country: US (occurrence: US)
  Receive Date: 20190521
  Receipt Date: 20190521
  Transmission Date: 20190711
  Serious: Yes (Death)
  Sender: FDA-Public Use
  Company Number: None

PATIENT
  Age: 44 Year
  Sex: Female

DRUGS (6)
  1. FONTANYL [Concomitant]
  2. MIRALAX [Concomitant]
     Active Substance: POLYETHYLENE GLYCOL 3350
  3. TEMOZOLOMIDE 100MG CAP [Suspect]
     Active Substance: TEMOZOLOMIDE
     Indication: MALIGNANT MELANOMA
     Dosage: 300MG QD X 5DS OF 28D CYC PO
     Route: 048
     Dates: start: 20180111
  4. SYNDROS [Concomitant]
     Active Substance: DRONABINOL
  5. VIT D [Concomitant]
     Active Substance: VITAMIN D NOS
  6. OXYCOONE [Concomitant]

REACTIONS (1)
  - Death [None]
